FAERS Safety Report 4708912-6 (Version None)
Quarter: 2005Q3

REPORT INFORMATION
  Report Type: 
  Country: None (occurrence: None)
  Receive Date: 20050707
  Receipt Date: 20041108
  Transmission Date: 20060218
  Serious: Yes (Hospitalization, Other)
  Sender: FDA-Public Use
  Company Number: DE-MERCK-0411DEU00120

PATIENT
  Age: 61 Year
  Sex: Male

DRUGS (9)
  1. VIOXX [Suspect]
     Indication: SPONDYLITIS
     Route: 048
     Dates: start: 20000303, end: 20000321
  2. VIOXX [Suspect]
     Route: 048
     Dates: end: 20041001
  3. VIOXX [Suspect]
     Indication: ANKYLOSING SPONDYLITIS
     Route: 048
     Dates: start: 20000303, end: 20000321
  4. VIOXX [Suspect]
     Route: 048
     Dates: end: 20041001
  5. RANITIDINE [Concomitant]
     Route: 065
     Dates: start: 20001005
  6. ENALAPRIL MALEATE [Concomitant]
     Route: 065
  7. DICLOFENAC [Concomitant]
     Route: 065
     Dates: start: 20001005
  8. ASPIRIN [Concomitant]
     Route: 065
     Dates: start: 20000302
  9. OMEPRAZOLE [Concomitant]
     Route: 065
     Dates: start: 20000302

REACTIONS (11)
  - BACK PAIN [None]
  - CEREBROVASCULAR ACCIDENT [None]
  - DYSAESTHESIA [None]
  - FAECAL INCONTINENCE [None]
  - FAILURE OF IMPLANT [None]
  - GASTRIC DISORDER [None]
  - GASTRIC ULCER [None]
  - LUMBAR SPINAL STENOSIS [None]
  - MYELOPATHY [None]
  - NEPHROLITHIASIS [None]
  - VISUAL ACUITY REDUCED [None]
